FAERS Safety Report 21970956 (Version 1)
Quarter: 2023Q1

REPORT INFORMATION
  Report Type: Report from Study
  Country: CA (occurrence: CA)
  Receive Date: 20230209
  Receipt Date: 20230209
  Transmission Date: 20230417
  Serious: Yes (Other)
  Sender: FDA-Public Use
  Company Number: CA-ABBVIE-4298319

PATIENT
  Age: 40 Year
  Sex: Female

DRUGS (2)
  1. SKYRIZI [Suspect]
     Active Substance: RISANKIZUMAB-RZAA
     Indication: Crohn^s disease
     Dosage: FORM STRENGTH:600 MG?WEEK 0-4-8 THEREAFTER 360MG SC Q12 WEEKS
     Route: 042
     Dates: start: 20230106
  2. PREDNISONE [Concomitant]
     Active Substance: PREDNISONE
     Indication: Dyschezia
     Dates: start: 202301

REACTIONS (5)
  - Intestinal obstruction [Unknown]
  - Dyschezia [Unknown]
  - Abdominal pain [Unknown]
  - Gastrointestinal inflammation [Unknown]
  - Abnormal faeces [Unknown]

NARRATIVE: CASE EVENT DATE: 20230101
